FAERS Safety Report 6070402-9 (Version None)
Quarter: 2009Q1

REPORT INFORMATION
  Report Type: 
  Country: None (occurrence: None)
  Receive Date: 20090209
  Receipt Date: 20090128
  Transmission Date: 20090719
  Serious: Yes (Hospitalization)
  Sender: FDA-Public Use
  Company Number: GB-AMGEN-UK268337

PATIENT
  Sex: Male

DRUGS (13)
  1. PANITUMUMAB [Suspect]
     Indication: COLORECTAL CANCER
     Route: 042
     Dates: start: 20071001
  2. IRINOTECAN HCL [Concomitant]
     Route: 065
  3. FLUOROURACIL [Concomitant]
     Route: 065
  4. LEUCOVORIN CALCIUM [Concomitant]
     Route: 065
  5. TRIAMCINOLONE [Concomitant]
     Route: 048
     Dates: start: 20071029
  6. CHLORHEXIDINE GLUCONATE [Concomitant]
     Route: 048
     Dates: start: 20071112
  7. CLINDAMYCIN [Concomitant]
     Route: 061
     Dates: start: 20071203
  8. NULYTELY [Concomitant]
     Route: 048
     Dates: start: 20071024
  9. CIPROFLOXACIN [Concomitant]
     Route: 048
     Dates: start: 20071001
  10. AQUEOUS CREAM [Concomitant]
     Route: 061
     Dates: start: 20080107
  11. DIPROBASE [Concomitant]
     Route: 065
     Dates: start: 20080101
  12. OILATUM 1 [Concomitant]
     Route: 061
     Dates: start: 20080121
  13. HYPROMELLOSE [Concomitant]
     Route: 065
     Dates: start: 20080121

REACTIONS (1)
  - PYREXIA [None]
